FAERS Safety Report 11173859 (Version 2)
Quarter: 2015Q2

REPORT INFORMATION
  Report Type: Spontaneous
  Country: US (occurrence: None)
  Receive Date: 20150605
  Receipt Date: 20150615
  Transmission Date: 20150821
  Serious: Yes (Hospitalization, Other)
  Sender: FDA-Public Use
  Company Number: US2015075702

PATIENT
  Age: 68 Year
  Sex: Male
  Weight: 77.1 kg

DRUGS (7)
  1. SELZENTRY [Suspect]
     Active Substance: MARAVIROC
     Indication: HIV INFECTION
     Dates: start: 200804
  2. PREZISTA [Concomitant]
     Active Substance: DARUNAVIR ETHANOLATE
  3. PROTONIX (PROTONIX (NOS)) [Concomitant]
  4. ISENTRESS [Concomitant]
     Active Substance: RALTEGRAVIR POTASSIUM
  5. SINGULAIR (MONTELUKAST SODIUM) [Concomitant]
  6. FLECAINIDE [Concomitant]
     Active Substance: FLECAINIDE
  7. METANX (MECOBALAMIN, METHYLFOLATE, PYRIDOXINE) [Concomitant]

REACTIONS (4)
  - Hypotension [None]
  - Labile hypertension [None]
  - Von Willebrand^s disease [None]
  - Hypertension [None]

NARRATIVE: CASE EVENT DATE: 200812
